FAERS Safety Report 5044265-4 (Version None)
Quarter: 2006Q2

REPORT INFORMATION
  Report Type: 
  Country: None (occurrence: None)
  Receive Date: 20060601
  Receipt Date: 20060330
  Transmission Date: 20061013
  Serious: No
  Sender: FDA-Public Use
  Company Number: US200603007240

PATIENT
  Age: 35 Year
  Sex: Female

DRUGS (7)
  1. CYMBALTA [Suspect]
     Indication: DEPRESSION
  2. OXYCODONE (OXYCODONE) [Concomitant]
  3. ATIVAN [Concomitant]
  4. TRAZODONE HCL [Concomitant]
  5. VICODIN [Concomitant]
  6. PERCOCET [Concomitant]
  7. TEMAZEPAM [Concomitant]

REACTIONS (12)
  - DECREASED APPETITE [None]
  - DIARRHOEA [None]
  - DIZZINESS [None]
  - HEADACHE [None]
  - IRRITABILITY [None]
  - NAUSEA [None]
  - SEXUAL DYSFUNCTION [None]
  - SOMNOLENCE [None]
  - ULCER [None]
  - VISION BLURRED [None]
  - VOMITING [None]
  - WEIGHT DECREASED [None]
